FAERS Safety Report 17038661 (Version 2)
Quarter: 2019Q4

REPORT INFORMATION
  Report Type: Report from Study
  Country: DE (occurrence: DE)
  Receive Date: 20191115
  Receipt Date: 20191204
  Transmission Date: 20200122
  Serious: Yes (Hospitalization, Other)
  Sender: FDA-Public Use
  Company Number: NVSC2019DE035461

PATIENT
  Age: 28 Year
  Sex: Female
  Weight: 57 kg

DRUGS (5)
  1. GILENYA [Suspect]
     Active Substance: FINGOLIMOD HYDROCHLORIDE
     Indication: MULTIPLE SCLEROSIS
     Dosage: UNK, QOD
     Route: 048
     Dates: start: 20140701
  2. NOVAMINOSULFON [Concomitant]
     Active Substance: METAMIZOLE SODIUM
     Dosage: 500 MG (8 TIMES)
     Route: 065
     Dates: start: 20191024
  3. CLINDAMYCIN. [Concomitant]
     Active Substance: CLINDAMYCIN
     Indication: PRODUCT USED FOR UNKNOWN INDICATION
     Dosage: 600 MG, TID
     Route: 065
     Dates: start: 20191024, end: 20191106
  4. NOVAMINOSULFON [Concomitant]
     Active Substance: METAMIZOLE SODIUM
     Indication: PAIN
     Dosage: 500 MG (8 TIMES)
     Route: 065
     Dates: start: 20191014, end: 20191020
  5. IBUPROFEN. [Concomitant]
     Active Substance: IBUPROFEN
     Indication: PAIN
     Dosage: 600 MG, TID
     Route: 065
     Dates: start: 20191014, end: 20191020

REACTIONS (2)
  - Prescribed underdose [Unknown]
  - Implant site abscess [Recovered/Resolved]

NARRATIVE: CASE EVENT DATE: 20191024
